FAERS Safety Report 7142157-8 (Version None)
Quarter: 2010Q4

REPORT INFORMATION
  Report Type: 
  Country: None (occurrence: None)
  Receive Date: 20101112
  Receipt Date: 20100917
  Transmission Date: 20110411
  Serious: No
  Sender: FDA-Public Use
  Company Number: 1000016341

PATIENT
  Age: 57 Year
  Sex: Female

DRUGS (5)
  1. SAVELLA [Suspect]
     Indication: FIBROMYALGIA
     Dosage: SEE IMAGE
     Route: 048
     Dates: start: 20091201, end: 20091201
  2. SAVELLA [Suspect]
     Indication: FIBROMYALGIA
     Dosage: SEE IMAGE
     Route: 048
     Dates: start: 20091201
  3. CETIRIZINE (CETIRIZINE) (10 MILLIGRAM, TABLETS) (CETIRIZINE) [Concomitant]
  4. MULTIVITAMINS (MULTIVITAMINS) (MULTIVITAMINS) [Concomitant]
  5. HERBS (NOS) (HERBS (NOS)) (HERBS (NOS)) [Concomitant]

REACTIONS (5)
  - BLOOD BLISTER [None]
  - BLOOD PRESSURE INCREASED [None]
  - HYPERHIDROSIS [None]
  - PERIPHERAL COLDNESS [None]
  - TENSION HEADACHE [None]
